FAERS Safety Report 18218543 (Version 2)
Quarter: 2020Q3

REPORT INFORMATION
  Report Type: Spontaneous
  Country: US (occurrence: US)
  Receive Date: 20200901
  Receipt Date: 20200909
  Transmission Date: 20201103
  Serious: Yes (Other)
  Sender: FDA-Public Use
  Company Number: US-MYLANLABS-2020M1075568

PATIENT
  Age: 55 Year
  Sex: Female
  Weight: 48 kg

DRUGS (1)
  1. ESTRADIOL TRANSDERMAL SYSTEM [Suspect]
     Active Substance: ESTRADIOL
     Indication: HORMONE REPLACEMENT THERAPY
     Dosage: 0.05 MILLIGRAM, QD
     Route: 062
     Dates: start: 20200816, end: 20200823

REACTIONS (7)
  - Abdominal discomfort [Recovering/Resolving]
  - Vomiting [Recovering/Resolving]
  - Overdose [Recovered/Resolved]
  - Suicidal ideation [Recovered/Resolved]
  - Vision blurred [Recovering/Resolving]
  - Nausea [Recovering/Resolving]
  - Therapeutic product effect increased [Recovering/Resolving]

NARRATIVE: CASE EVENT DATE: 20200816
